FAERS Safety Report 4426789-3 (Version None)
Quarter: 2004Q3

REPORT INFORMATION
  Report Type: 
  Country: None (occurrence: None)
  Receive Date: 20040816
  Receipt Date: 20040609
  Transmission Date: 20050211
  Serious: Yes (Hospitalization)
  Sender: FDA-Public Use
  Company Number: US-BRISTOL-MYERS SQUIBB COMPANY-12609988

PATIENT
  Age: 84 Year
  Sex: Female
  Weight: 79 kg

DRUGS (12)
  1. ABILIFY [Suspect]
     Indication: BIPOLAR DISORDER
     Dosage: 5 MG/DAY 12-MAR-04+INC. TO 10 MG/DAY 23-MAR-04;STOPPED 17-JUN-04,RESTART 21-JUN-04, 5 MG/DAY
     Route: 048
     Dates: start: 20040312
  2. LAMICTAL [Suspect]
     Dates: start: 20040312
  3. MELATONIN [Suspect]
     Dates: start: 20040331, end: 20040605
  4. SEROQUEL [Concomitant]
  5. REMINYL [Concomitant]
  6. EFFEXOR XR [Concomitant]
  7. NOLVADEX [Concomitant]
  8. AMBIEN [Concomitant]
  9. XANAX [Concomitant]
  10. SENOKOT [Concomitant]
  11. REMERON [Concomitant]
  12. MULTI-VITAMIN [Concomitant]

REACTIONS (4)
  - BLOOD GLUCOSE INCREASED [None]
  - PANCREATIC PSEUDOCYST [None]
  - PANCREATITIS [None]
  - WHITE BLOOD CELL COUNT INCREASED [None]
